FAERS Safety Report 16137418 (Version 1)
Quarter: 2019Q1

REPORT INFORMATION
  Report Type: Spontaneous
  Country: IT (occurrence: IT)
  Receive Date: 20190330
  Receipt Date: 20190330
  Transmission Date: 20190418
  Serious: Yes (Hospitalization)
  Sender: FDA-Public Use
  Company Number: IT-AUROBINDO-AUR-APL-2019-015619

PATIENT

DRUGS (3)
  1. BROMAZEPAM AUROBINDO ITALIA 2.5MG/ML ORAL DROPS, SOLUTION [Suspect]
     Active Substance: BROMAZEPAM
     Indication: DEPRESSION
     Dosage: 2 DOSAGE FORM, (IN TOTAL)
     Route: 048
     Dates: start: 20190312
  2. ALPRAZOLAM TABLETS [Suspect]
     Active Substance: ALPRAZOLAM
     Indication: DEPRESSION
     Dosage: 10 DOSAGE FORM (IN TOTAL)
     Route: 048
     Dates: start: 20190312
  3. ZOLPIDEM [Suspect]
     Active Substance: ZOLPIDEM\ZOLPIDEM TARTRATE
     Indication: DEPRESSION
     Dosage: 17 DOSAGE FORM (IN TOTAL)
     Route: 048
     Dates: start: 20190312

REACTIONS (2)
  - Sedation [Recovering/Resolving]
  - Fall [Recovering/Resolving]

NARRATIVE: CASE EVENT DATE: 20190312
